FAERS Safety Report 9890363 (Version 1)
Quarter: 2014Q1

REPORT INFORMATION
  Report Type: Spontaneous
  Country: IT (occurrence: IT)
  Receive Date: 20140212
  Receipt Date: 20140212
  Transmission Date: 20141002
  Serious: Yes (Hospitalization)
  Sender: FDA-Public Use
  Company Number: IT-ASTRAZENECA-2014SE08604

PATIENT
  Age: 20061 Day
  Sex: Female

DRUGS (10)
  1. CRESTOR [Suspect]
     Indication: HYPERCHOLESTEROLAEMIA
     Route: 048
     Dates: start: 20131201, end: 20140117
  2. SANDIMMUN NEORAL [Suspect]
     Indication: RENAL TRANSPLANT
     Route: 048
     Dates: start: 19990601, end: 20140204
  3. SANDIMMUN NEORAL [Suspect]
     Indication: RENAL TRANSPLANT
     Route: 048
  4. MYFORTIC [Suspect]
     Indication: RENAL TRANSPLANT
     Route: 048
     Dates: start: 19990601, end: 20140204
  5. ATENOLOL [Concomitant]
     Route: 048
  6. EPOETIN ALPHA [Concomitant]
     Route: 058
  7. URBASON [Concomitant]
  8. LUCEN [Concomitant]
  9. DUOPLAVIN [Concomitant]
  10. BRILIQUE [Concomitant]
     Route: 048

REACTIONS (4)
  - Renal failure acute [Recovered/Resolved]
  - Diarrhoea [Recovered/Resolved]
  - Rhabdomyolysis [Recovered/Resolved]
  - Hepatitis [Recovered/Resolved]
